FAERS Safety Report 25703895 (Version 2)
Quarter: 2025Q4

REPORT INFORMATION
  Report Type: Spontaneous
  Country: US (occurrence: US)
  Receive Date: 20250820
  Receipt Date: 20251226
  Transmission Date: 20260118
  Serious: Yes (Hospitalization, Other)
  Sender: ELI LILLY AND COMPANY
  Company Number: US-ELI_LILLY_AND_COMPANY-US202508011420

PATIENT
  Age: 67 Year
  Sex: Female
  Weight: 67.574 kg

DRUGS (8)
  1. TRULICITY [Suspect]
     Active Substance: DULAGLUTIDE
     Indication: Type 2 diabetes mellitus
     Dosage: 0.75 MG, WEEKLY (1/W)
     Route: 065
     Dates: start: 20220414
  2. TRULICITY [Suspect]
     Active Substance: DULAGLUTIDE
     Dosage: 1.5 MG, WEEKLY (1/W)
     Route: 065
     Dates: start: 20221007
  3. TRULICITY [Suspect]
     Active Substance: DULAGLUTIDE
     Dosage: 3 MG, WEEKLY (1/W)
     Route: 065
     Dates: start: 20230807, end: 20230901
  4. JANUVIA [Concomitant]
     Active Substance: SITAGLIPTIN PHOSPHATE
     Indication: Diabetes mellitus
  5. ATORVASTATIN [Concomitant]
     Active Substance: ATORVASTATIN
     Indication: Blood cholesterol increased
  6. LOSARTAN [Concomitant]
     Active Substance: LOSARTAN
     Indication: Hypertension
  7. GABAPENTIN [Concomitant]
     Active Substance: GABAPENTIN
     Indication: Diabetes mellitus
  8. GLIPIZIDE [Concomitant]
     Active Substance: GLIPIZIDE
     Indication: Diabetes mellitus

REACTIONS (7)
  - Impaired gastric emptying [Unknown]
  - Nausea [Recovered/Resolved]
  - Vomiting [Recovered/Resolved]
  - Decreased appetite [Recovered/Resolved]
  - Abdominal pain upper [Recovered/Resolved]
  - Diarrhoea [Unknown]
  - Abdominal pain [Unknown]

NARRATIVE: CASE EVENT DATE: 20230901
